FAERS Safety Report 4653045-0 (Version None)
Quarter: 2005Q2

REPORT INFORMATION
  Report Type: 
  Country: None (occurrence: None)
  Receive Date: 20050505
  Receipt Date: 20050421
  Transmission Date: 20051028
  Serious: Yes (Hospitalization)
  Sender: FDA-Public Use
  Company Number: DE-MERCK-0504DEU00169

PATIENT
  Age: 46 Year
  Sex: Male
  Weight: 63 kg

DRUGS (14)
  1. ZETIA [Suspect]
     Indication: HYPERCHOLESTEROLAEMIA
     Route: 048
     Dates: start: 20050101, end: 20050201
  2. ZOCOR [Suspect]
     Indication: HYPERCHOLESTEROLAEMIA
     Route: 048
     Dates: start: 20050101, end: 20050101
  3. SIMVASTATIN [Suspect]
     Indication: HYPERCHOLESTEROLAEMIA
     Route: 048
     Dates: start: 20050101, end: 20050201
  4. CYCLOSPORINE [Suspect]
     Indication: IMMUNOSUPPRESSION
     Route: 065
     Dates: start: 20050201
  5. CYCLOSPORINE [Suspect]
     Route: 065
     Dates: start: 20041104, end: 20050201
  6. ESOMEPRAZOLE MAGNESIUM [Concomitant]
     Route: 048
  7. MYCOPHENOLATE MOFETIL [Concomitant]
     Route: 048
  8. ASPIRIN [Concomitant]
     Route: 048
  9. FUROSEMIDE [Concomitant]
     Route: 065
  10. PREDNISOLONE [Concomitant]
     Route: 065
  11. BISOPROLOL FUMARATE [Concomitant]
     Route: 065
  12. AMLODIPINE BESYLATE [Concomitant]
     Route: 065
  13. AMPHOTERICIN B [Concomitant]
     Route: 048
  14. CALCIUM CARBONATE AND CHOLECALCIFEROL AND SODIUM (UNSPECIFIED) [Concomitant]
     Route: 065

REACTIONS (3)
  - DRUG INTERACTION [None]
  - RHABDOMYOLYSIS [None]
  - TRANSPLANT REJECTION [None]
